FAERS Safety Report 24005011 (Version 1)
Quarter: 2024Q2

REPORT INFORMATION
  Report Type: Spontaneous
  Country: US (occurrence: US)
  Receive Date: 20240624
  Receipt Date: 20240624
  Transmission Date: 20240716
  Serious: No
  Sender: FDA-Public Use
  Company Number: US-INCYTE CORPORATION-2024IN006362

PATIENT

DRUGS (5)
  1. JAKAFI [Suspect]
     Active Substance: RUXOLITINIB
     Indication: Polycythaemia vera
     Dosage: 20 MILLIGRAM, BID
     Route: 048
  2. ATORVASTATIN [Concomitant]
     Active Substance: ATORVASTATIN
     Indication: Product used for unknown indication
     Dosage: 10 MILLIGRAM
     Route: 065
  3. CENTRUM ADULTS [Concomitant]
     Indication: Product used for unknown indication
     Dosage: UNK
     Route: 065
  4. DORZOLAMIDE [Concomitant]
     Active Substance: DORZOLAMIDE
     Indication: Product used for unknown indication
     Dosage: 2-0.5%
     Route: 065
  5. METFORMIN HYDROCHLORIDE [Concomitant]
     Active Substance: METFORMIN HYDROCHLORIDE
     Indication: Product used for unknown indication
     Dosage: 500 MILLIGRAM
     Route: 065

REACTIONS (11)
  - Full blood count abnormal [Unknown]
  - Blood calcium increased [Unknown]
  - Glucose tolerance impaired [Unknown]
  - Arthralgia [Not Recovered/Not Resolved]
  - Bone pain [Recovered/Resolved]
  - Ocular discomfort [Unknown]
  - Emotional disorder [Unknown]
  - Blood cholesterol increased [Unknown]
  - Hypertension [Unknown]
  - Nausea [Recovered/Resolved]
  - Constipation [Recovered/Resolved]
